FAERS Safety Report 9642466 (Version 2)
Quarter: 2013Q4

REPORT INFORMATION
  Report Type: Other
  Country: JP (occurrence: JP)
  Receive Date: 20131024
  Receipt Date: 20131130
  Transmission Date: 20140711
  Serious: Yes (Hospitalization, Other)
  Sender: FDA-Public Use
  Company Number: JP-BRISTOL-MYERS SQUIBB COMPANY-19605922

PATIENT
  Age: 46 Year
  Sex: Female
  Weight: 53.8 kg

DRUGS (3)
  1. SPRYCEL [Suspect]
     Indication: CHRONIC MYELOID LEUKAEMIA
     Dosage: 6DC11-19JUN12?9JUL12-6AUG12
     Route: 048
     Dates: start: 20111206
  2. GLAKAY [Concomitant]
     Indication: PROPHYLAXIS
     Dosage: CAPS
     Dates: start: 20120813, end: 20130107
  3. ALFAROL [Concomitant]
     Indication: PROPHYLAXIS
     Route: 048
     Dates: start: 20120813, end: 20130107

REACTIONS (1)
  - Demyelinating polyneuropathy [Recovering/Resolving]
